FAERS Safety Report 8887021 (Version 1)
Quarter: 2012Q4

REPORT INFORMATION
  Report Type: 
  Country: ES (occurrence: ES)
  Receive Date: 20121105
  Receipt Date: 20121105
  Transmission Date: 20130627
  Serious: Yes (Hospitalization)
  Sender: FDA-Public Use
  Company Number: ES-009507513-1211ESP001368

PATIENT
  Age: 79 Year
  Sex: Male
  Weight: 71 kg

DRUGS (5)
  1. SINEMET-PLUS [Suspect]
     Indication: PARKINSON^S DISEASE
     Route: 048
     Dates: start: 20120515
  2. EUCREAS [Suspect]
     Indication: DIABETES MELLITUS
     Route: 048
     Dates: end: 20120529
  3. PRADAXA [Suspect]
     Indication: ATRIAL FIBRILLATION
     Route: 048
     Dates: end: 20120529
  4. AMLODIPINE [Concomitant]
     Indication: HYPERTENSION
     Route: 048
  5. ESCITALOPRAM [Concomitant]
     Indication: RESPIRATORY DEPRESSION
     Route: 048

REACTIONS (4)
  - Presyncope [Recovered/Resolved]
  - Dyspnoea [Recovered/Resolved]
  - Ischaemic cardiomyopathy [Recovered/Resolved]
  - Mitral valve incompetence [None]
